FAERS Safety Report 23616817 (Version 1)
Quarter: 2024Q1

REPORT INFORMATION
  Report Type: Spontaneous
  Country: US (occurrence: US)
  Receive Date: 20240311
  Receipt Date: 20240311
  Transmission Date: 20240409
  Serious: No
  Sender: FDA-Public Use
  Company Number: US-INSUD PHARMA-2403US01883

PATIENT

DRUGS (2)
  1. SLYND [Suspect]
     Active Substance: DROSPIRENONE
     Indication: Oral contraception
     Dosage: UNK UNK, QD
     Route: 048
     Dates: start: 20240304
  2. SLYND [Suspect]
     Active Substance: DROSPIRENONE
     Dosage: UNK UNK, QD
     Route: 048
     Dates: start: 20240213, end: 20240302

REACTIONS (2)
  - Intermenstrual bleeding [Recovered/Resolved]
  - Maternal exposure during breast feeding [Unknown]

NARRATIVE: CASE EVENT DATE: 20240201
